FAERS Safety Report 16303525 (Version 2)
Quarter: 2019Q2

REPORT INFORMATION
  Report Type: Spontaneous
  Country: US (occurrence: US)
  Receive Date: 20190513
  Receipt Date: 20190513
  Transmission Date: 20190711
  Serious: Yes (Other)
  Sender: FDA-Public Use
  Company Number: US-CELGENEUS-USA-20190500798

PATIENT
  Sex: Male

DRUGS (3)
  1. THALOMID [Suspect]
     Active Substance: THALIDOMIDE
     Indication: GASTROINTESTINAL ARTERIOVENOUS MALFORMATION
     Dosage: 100 MILLIGRAM
     Route: 048
     Dates: start: 20190404
  2. THALOMID [Suspect]
     Active Substance: THALIDOMIDE
     Indication: ANGIOPATHY
  3. THALOMID [Suspect]
     Active Substance: THALIDOMIDE
     Indication: OFF LABEL USE

REACTIONS (2)
  - Haemorrhage [Unknown]
  - Constipation [Unknown]

NARRATIVE: CASE EVENT DATE: 2019
